FAERS Safety Report 24398183 (Version 1)
Quarter: 2024Q4

REPORT INFORMATION
  Report Type: Spontaneous
  Country: US (occurrence: US)
  Receive Date: 20241004
  Receipt Date: 20241004
  Transmission Date: 20250115
  Serious: Yes (Hospitalization, Other)
  Sender: DR REDDYS
  Company Number: US-DRL-USA-LIT/USA/24/0014504

PATIENT
  Age: 45 Year
  Sex: Male

DRUGS (8)
  1. DOXYCYCLINE [Suspect]
     Active Substance: DOXYCYCLINE
     Indication: Cystic fibrosis
  2. LEVOFLOXACIN [Suspect]
     Active Substance: LEVOFLOXACIN
     Indication: Cystic fibrosis
  3. CEFEPIME [Suspect]
     Active Substance: CEFEPIME HYDROCHLORIDE
     Indication: Cystic fibrosis
  4. ELEXACAFTOR [Concomitant]
     Active Substance: ELEXACAFTOR
     Indication: Cystic fibrosis
  5. TEZACAFTOR [Concomitant]
     Active Substance: TEZACAFTOR
     Indication: Cystic fibrosis
  6. IVACAFTOR [Concomitant]
     Active Substance: IVACAFTOR
     Indication: Cystic fibrosis
  7. STREPTODORNASE\STREPTOKINASE [Concomitant]
     Active Substance: STREPTODORNASE\STREPTOKINASE
     Indication: Cystic fibrosis
  8. ALBUTEROL [Concomitant]
     Active Substance: ALBUTEROL
     Indication: Cystic fibrosis

REACTIONS (2)
  - Diaphragmatic paralysis [Recovering/Resolving]
  - Product use in unapproved indication [Unknown]
